FAERS Safety Report 8165936-7 (Version None)
Quarter: 2012Q1

REPORT INFORMATION
  Report Type: 
  Country: None (occurrence: None)
  Receive Date: 20120227
  Receipt Date: 20111221
  Transmission Date: 20120608
  Serious: No
  Sender: FDA-Public Use
  Company Number: US-MYLANLABS-2011S1024078

PATIENT
  Age: 16 Year
  Sex: Female
  Weight: 55.34 kg

DRUGS (3)
  1. AMNESTEEM [Suspect]
     Dates: start: 20110711, end: 20111117
  2. AMNESTEEM [Suspect]
     Indication: ACNE
     Dates: start: 20110711, end: 20111117
  3. ACLOVATE [Concomitant]
     Dates: start: 20110711

REACTIONS (2)
  - SKIN FISSURES [None]
  - INFLUENZA [None]
